FAERS Safety Report 18200274 (Version 1)
Quarter: 2020Q3

REPORT INFORMATION
  Report Type: Spontaneous
  Country: US (occurrence: US)
  Receive Date: 20200827
  Receipt Date: 20200827
  Transmission Date: 20201103
  Serious: No
  Sender: FDA-Public Use
  Company Number: US-HIKMA PHARMACEUTICALS USA INC.-US-H14001-20-03141

PATIENT
  Sex: Female

DRUGS (2)
  1. METHOTREXATE. [Suspect]
     Active Substance: METHOTREXATE
     Indication: LUPUS VULGARIS
     Route: 048
  2. RASUVO [Concomitant]
     Active Substance: METHOTREXATE SODIUM
     Indication: LUPUS VULGARIS
     Route: 065

REACTIONS (1)
  - Drug ineffective [Unknown]
